FAERS Safety Report 4632727-0 (Version None)
Quarter: 2005Q2

REPORT INFORMATION
  Report Type: 
  Country: None (occurrence: None)
  Receive Date: 20050412
  Receipt Date: 20050401
  Transmission Date: 20051028
  Serious: Yes (Death)
  Sender: FDA-Public Use
  Company Number: GB-BOEHRINGER INGELHEIM PHARMACEUTICALS, INC.-2005-UK-00548UK

PATIENT
  Sex: Male

DRUGS (7)
  1. ATROVENT [Suspect]
  2. SALBUTAMOL [Suspect]
  3. SEREVENT [Suspect]
     Dosage: SEREVENT 250
  4. CARBAMAZEPINE [Suspect]
     Dosage: 200 MG BD
  5. CARBOCISTEINE [Suspect]
  6. FRUSENE [Suspect]
  7. OXYGEN [Suspect]

REACTIONS (2)
  - CHRONIC OBSTRUCTIVE PULMONARY DISEASE [None]
  - PNEUMONIA [None]
